FAERS Safety Report 4890900-0 (Version None)
Quarter: 2005Q4

REPORT INFORMATION
  Report Type: 
  Country: None (occurrence: None)
  Receive Date: 20051220
  Receipt Date: 20051109
  Transmission Date: 20060501
  Serious: Yes (Other)
  Sender: FDA-Public Use
  Company Number: 424518

PATIENT
  Sex: Female

DRUGS (2)
  1. BONIVA [Suspect]
     Dosage: ORAL
     Route: 048
     Dates: start: 20051101
  2. THYROID MEDICATION (THYROID DRUG NOS) [Concomitant]

REACTIONS (6)
  - CHEST PAIN [None]
  - CONSTIPATION [None]
  - GASTRIC DISORDER [None]
  - HEADACHE [None]
  - INFLUENZA LIKE ILLNESS [None]
  - MUSCULOSKELETAL CHEST PAIN [None]
